FAERS Safety Report 23852264 (Version 2)
Quarter: 2025Q2

REPORT INFORMATION
  Report Type: Spontaneous
  Country: JP (occurrence: JP)
  Receive Date: 20240514
  Receipt Date: 20250415
  Transmission Date: 20250716
  Serious: Yes (Hospitalization, Other)
  Sender: DAIICHI
  Company Number: JP-DSJP-DSJ-2024-116951

PATIENT
  Age: 81 Year
  Sex: Female
  Weight: 51 kg

DRUGS (15)
  1. EDOXABAN TOSYLATE [Suspect]
     Active Substance: EDOXABAN TOSYLATE
     Indication: Atrial fibrillation
     Dosage: 15 MG, QD
     Route: 048
     Dates: start: 20240126, end: 20240409
  2. VONOPRAZAN FUMARATE [Concomitant]
     Active Substance: VONOPRAZAN FUMARATE
     Indication: Gastrooesophageal reflux disease
     Dosage: 10 MG, QD
     Route: 048
     Dates: start: 20171228
  3. LINAGLIPTIN [Concomitant]
     Active Substance: LINAGLIPTIN
     Indication: Diabetes mellitus
     Dosage: 5 MG, QD
     Route: 048
     Dates: start: 20180109, end: 20240409
  4. AZOSEMIDE [Concomitant]
     Active Substance: AZOSEMIDE
     Indication: Cardiac failure chronic
     Dosage: 60 MG, QD
     Route: 048
  5. AMLODIPINE BESYLATE [Concomitant]
     Active Substance: AMLODIPINE BESYLATE
     Indication: Hypertension
     Dosage: 5 MG, QD
     Route: 048
     Dates: start: 20180103, end: 20240409
  6. AMLODIPINE BESYLATE [Concomitant]
     Active Substance: AMLODIPINE BESYLATE
     Dosage: 5 MG, QD
     Route: 048
     Dates: start: 20240420
  7. ESZOPICLONE [Concomitant]
     Active Substance: ESZOPICLONE
     Indication: Insomnia
     Dosage: 2 MG, QD
     Route: 048
     Dates: end: 20240409
  8. NICORANDIL [Concomitant]
     Active Substance: NICORANDIL
     Indication: Arteriosclerosis coronary artery
     Dosage: 5 MG, TID
     Route: 048
     Dates: start: 20171228, end: 20240409
  9. NICORANDIL [Concomitant]
     Active Substance: NICORANDIL
     Dosage: 5 MG, TID
     Route: 048
     Dates: start: 20240420
  10. PITAVASTATIN CALCIUM [Concomitant]
     Active Substance: PITAVASTATIN CALCIUM
     Indication: Hyperlipidaemia
     Dosage: 2 MG, QD
     Route: 048
     Dates: start: 20171228, end: 20240409
  11. PITAVASTATIN CALCIUM [Concomitant]
     Active Substance: PITAVASTATIN CALCIUM
     Dosage: 2 MG, QD
     Route: 048
     Dates: start: 20240420
  12. FEBUXOSTAT [Concomitant]
     Active Substance: FEBUXOSTAT
     Indication: Hyperuricaemia
     Dosage: 10 MG, QD
     Route: 048
     Dates: start: 20180108, end: 20240425
  13. SAMSCA [Concomitant]
     Active Substance: TOLVAPTAN
     Indication: Cardiac failure chronic
     Dosage: 7.5 MG, QD
     Route: 048
     Dates: start: 20240118, end: 20240409
  14. ACETAMINOPHEN [Concomitant]
     Active Substance: ACETAMINOPHEN
     Indication: Back pain
     Route: 048
  15. SENNOSIDES A AND B [Concomitant]
     Active Substance: SENNOSIDES A AND B
     Indication: Constipation
     Route: 048

REACTIONS (3)
  - Haemorrhage intracranial [Recovered/Resolved with Sequelae]
  - Coagulation factor V level decreased [Recovering/Resolving]
  - Eczema asteatotic [Unknown]

NARRATIVE: CASE EVENT DATE: 20240325
